FAERS Safety Report 8397248-0 (Version None)
Quarter: 2012Q2

REPORT INFORMATION
  Report Type: 
  Country: None (occurrence: None)
  Receive Date: 20120531
  Receipt Date: 20120515
  Transmission Date: 20120825
  Serious: No
  Sender: FDA-Public Use
  Company Number: US-PFIZER INC-2012068691

PATIENT
  Sex: Male

DRUGS (7)
  1. EPOGEN [Concomitant]
     Dosage: UNK
  2. VENOFER [Concomitant]
     Dosage: UNK
  3. RENVELA [Concomitant]
     Dosage: UNK
  4. LIPITOR [Suspect]
     Dosage: 10 MG, 1X/DAY
  5. CLONIDINE [Concomitant]
     Dosage: UNK
  6. SENSIPAR [Concomitant]
     Dosage: UNK
  7. ASPIRIN [Concomitant]
     Dosage: UNK

REACTIONS (1)
  - NO ADVERSE EVENT [None]
